FAERS Safety Report 5012323-6 (Version None)
Quarter: 2006Q2

REPORT INFORMATION
  Report Type: 
  Country: None (occurrence: None)
  Receive Date: 20060525
  Receipt Date: 20060525
  Transmission Date: 20061013
  Serious: No
  Sender: FDA-Public Use
  Company Number: None

PATIENT
  Sex: Male
  Weight: 86.637 kg

DRUGS (1)
  1. ZYPREXA [Suspect]
     Indication: NERVOUS SYSTEM DISORDER
     Dosage: 10 MG 1 X A DAY ORAL
     Route: 048
     Dates: start: 20000101

REACTIONS (1)
  - DIABETES MELLITUS [None]
